FAERS Safety Report 6740709-8 (Version None)
Quarter: 2010Q2

REPORT INFORMATION
  Report Type: 
  Country: None (occurrence: None)
  Receive Date: 20100521
  Receipt Date: 20100514
  Transmission Date: 20101027
  Serious: No
  Sender: FDA-Public Use
  Company Number: 008987

PATIENT
  Age: 84 Year
  Sex: Male
  Weight: 50.5 kg

DRUGS (9)
  1. PLETAL [Suspect]
     Indication: ARTERIAL OCCLUSIVE DISEASE
     Dosage: 100 MG,BID, ORAL
     Route: 048
     Dates: start: 20091014, end: 20091021
  2. CRESTOR [Concomitant]
  3. TAMSULOSIN HCL [Concomitant]
  4. CHLORMADINONE ACETATE TAB [Concomitant]
  5. CONIEL (BENIDIPINE HYDROCHLORIDE) [Concomitant]
  6. ARICEPT [Concomitant]
  7. STAYBLA (MIDAFENACIN) [Concomitant]
  8. ZETIA [Concomitant]
  9. DOXAZOSIN MESYLATE [Concomitant]

REACTIONS (7)
  - CARDIAC FAILURE [None]
  - DEPRESSED LEVEL OF CONSCIOUSNESS [None]
  - DYSSTASIA [None]
  - FACE OEDEMA [None]
  - FAECAL INCONTINENCE [None]
  - HEART RATE INCREASED [None]
  - OEDEMA PERIPHERAL [None]
